FAERS Safety Report 23143599 (Version 5)
Quarter: 2024Q1

REPORT INFORMATION
  Report Type: Report from Study
  Country: US (occurrence: US)
  Receive Date: 20231103
  Receipt Date: 20240110
  Transmission Date: 20240409
  Serious: Yes (Hospitalization, Other)
  Sender: FDA-Public Use
  Company Number: US-GILEAD-2023-0649721

PATIENT
  Sex: Female

DRUGS (7)
  1. AMBRISENTAN [Suspect]
     Active Substance: AMBRISENTAN
     Indication: Pulmonary hypertension
     Dosage: 5 MG, QD
     Route: 065
     Dates: start: 20230703
  2. AMBRISENTAN [Suspect]
     Active Substance: AMBRISENTAN
     Indication: Pulmonary arterial hypertension
  3. REMODULIN [Concomitant]
     Active Substance: TREPROSTINIL
     Indication: Product used for unknown indication
     Dosage: UNK
     Route: 065
     Dates: start: 20231112
  4. SILDENAFIL [Concomitant]
     Active Substance: SILDENAFIL
  5. SILDENAFIL CITRATE [Concomitant]
     Active Substance: SILDENAFIL CITRATE
  6. BOSENTAN [Concomitant]
     Active Substance: BOSENTAN
  7. TADLIQ [Concomitant]
     Active Substance: TADALAFIL

REACTIONS (5)
  - Tracheostomy [Recovering/Resolving]
  - Pulmonary hypertension [Unknown]
  - Oxygen saturation decreased [Unknown]
  - Respiration abnormal [Unknown]
  - Off label use [Not Recovered/Not Resolved]
